FAERS Safety Report 5221143-9 (Version None)
Quarter: 2007Q1

REPORT INFORMATION
  Report Type: 
  Country: None (occurrence: None)
  Receive Date: 20070126
  Receipt Date: 20070116
  Transmission Date: 20070707
  Serious: Yes (Death)
  Sender: FDA-Public Use
  Company Number: US-ROCHE-477732

PATIENT
  Age: 50 Year
  Sex: Male
  Weight: 78 kg

DRUGS (17)
  1. PEG-INTERFERON ALFA 2A (RO 25-8310) [Suspect]
     Indication: HEPATITIS C
     Dosage: ADMINISTERED EVERY TUESDAY
     Route: 058
     Dates: start: 20060718, end: 20060730
  2. RIBAVIRIN [Suspect]
     Indication: HEPATITIS C
     Route: 048
     Dates: start: 20060718, end: 20060730
  3. LABETALOL HCL [Concomitant]
     Dates: start: 20010501
  4. PROBENECID [Concomitant]
     Dates: start: 20001207
  5. TOPAMAX [Concomitant]
     Dates: start: 20050519
  6. MECLIZINE [Concomitant]
     Dates: start: 20000717
  7. CLONAZEPAM [Concomitant]
     Dates: start: 19981204
  8. FAMOTIDINE [Concomitant]
     Dates: start: 20060603
  9. INDOMETHACIN [Concomitant]
     Dates: start: 19990223
  10. REMERON [Concomitant]
     Dosage: TAKEN AT BEDTIME
     Dates: start: 20020416
  11. TOFRANIL [Concomitant]
     Dates: start: 20041027
  12. ALBUTEROL [Concomitant]
     Dates: start: 19990506
  13. TRAMADOL HCL [Concomitant]
     Dosage: ADMINISTERED AS NEEDED
     Dates: start: 20060309
  14. ENALAPRIL MALEATE [Concomitant]
     Dates: start: 20060504
  15. FIORICET [Concomitant]
     Dates: start: 20040406
  16. GLUCOTROL XL [Concomitant]
  17. LOMOTIL [Concomitant]

REACTIONS (1)
  - CARDIO-RESPIRATORY ARREST [None]
